FAERS Safety Report 6833440-1 (Version None)
Quarter: 2010Q3

REPORT INFORMATION
  Report Type: 
  Country: None (occurrence: None)
  Receive Date: 20100712
  Receipt Date: 20070321
  Transmission Date: 20110219
  Serious: No
  Sender: FDA-Public Use
  Company Number: US-PFIZER INC-2007022888

PATIENT
  Sex: Female
  Weight: 45.36 kg

DRUGS (3)
  1. CHANTIX [Suspect]
     Indication: SMOKING CESSATION THERAPY
     Dates: start: 20070307
  2. ACETYLSALICYLIC ACID [Concomitant]
  3. LISINOPRIL [Concomitant]
     Indication: HYPERTENSION

REACTIONS (3)
  - DRUG DOSE OMISSION [None]
  - NAUSEA [None]
  - VOMITING [None]
